FAERS Safety Report 6261476-0 (Version None)
Quarter: 2009Q3

REPORT INFORMATION
  Report Type: 
  Country: None (occurrence: None)
  Receive Date: 20090707
  Receipt Date: 20090707
  Transmission Date: 20100115
  Serious: No
  Sender: FDA-Public Use
  Company Number: None

PATIENT
  Age: 69 Year
  Sex: Female
  Weight: 61.2356 kg

DRUGS (1)
  1. FLUCONAZOLE [Suspect]
     Indication: PYREXIA
     Dosage: 1 TABLET TWICE A DAY PO
     Route: 048
     Dates: start: 20090227, end: 20090607

REACTIONS (1)
  - ALOPECIA [None]
